FAERS Safety Report 20839997 (Version 6)
Quarter: 2022Q4

REPORT INFORMATION
  Report Type: Other
  Country: CA (occurrence: None)
  Receive Date: 20220517
  Receipt Date: 20221219
  Transmission Date: 20230112
  Serious: No
  Sender: FDA-Public Use
  Company Number: CA-ROCHE-3095756

PATIENT
  Age: 36 Year
  Sex: Female

DRUGS (2)
  1. OCREVUS [Suspect]
     Active Substance: OCRELIZUMAB
     Indication: Relapsing-remitting multiple sclerosis
     Dosage: 300 MG AT DAY 0 AND 14, THEN 600 MG EVERY 6 MONTHS.
     Route: 042
     Dates: start: 20210225
  2. ADVIL [Concomitant]
     Active Substance: IBUPROFEN

REACTIONS (10)
  - COVID-19 [Recovering/Resolving]
  - Oropharyngeal pain [Recovered/Resolved]
  - Adverse drug reaction [Recovered/Resolved]
  - Drug eruption [Recovered/Resolved]
  - Migraine [Not Recovered/Not Resolved]
  - Lip swelling [Unknown]
  - Nasal oedema [Unknown]
  - Eye swelling [Unknown]
  - Urine odour abnormal [Recovered/Resolved]
  - Pharyngitis [Unknown]

NARRATIVE: CASE EVENT DATE: 20221208
